FAERS Safety Report 6817354-9 (Version None)
Quarter: 2010Q3

REPORT INFORMATION
  Report Type: 
  Country: None (occurrence: None)
  Receive Date: 20100706
  Receipt Date: 20100628
  Transmission Date: 20110219
  Serious: Yes (Hospitalization)
  Sender: FDA-Public Use
  Company Number: NL-AMGEN-QUU421045

PATIENT
  Sex: Male
  Weight: 90 kg

DRUGS (1)
  1. NEULASTA [Suspect]
     Indication: NEUTROPENIA
     Route: 065
     Dates: start: 20100112

REACTIONS (1)
  - CEREBRAL INFARCTION [None]
